FAERS Safety Report 8539212-4 (Version None)
Quarter: 2012Q3

REPORT INFORMATION
  Report Type: 
  Country: None (occurrence: None)
  Receive Date: 20120726
  Receipt Date: 20120723
  Transmission Date: 20120928
  Serious: Yes (Death, Hospitalization)
  Sender: FDA-Public Use
  Company Number: DE-PFIZER INC-2012167672

PATIENT
  Age: 71 Year
  Sex: Female
  Weight: 70 kg

DRUGS (3)
  1. PROCHLORPERAZINE [Concomitant]
     Dosage: UNK, AS NEEDED
  2. SUTENT [Suspect]
     Dosage: 50 MG PER DAY, AFTERWARDS 2 WEEKS BREAK
     Dates: start: 20111114
  3. RANITIDINE [Concomitant]
     Dosage: UNK

REACTIONS (3)
  - ABDOMINAL PAIN [None]
  - NAUSEA [None]
  - VOMITING [None]
